FAERS Safety Report 5073592-X (Version None)
Quarter: 2006Q3

REPORT INFORMATION
  Report Type: 
  Country: None (occurrence: None)
  Receive Date: 20060808
  Receipt Date: 20060804
  Transmission Date: 20061208
  Serious: Yes (Disabling)
  Sender: FDA-Public Use
  Company Number: US-GLAXOSMITHKLINE-A0615313A

PATIENT
  Age: 59 Year
  Sex: Female

DRUGS (6)
  1. ADVAIR DISKUS 100/50 [Suspect]
     Indication: EMPHYSEMA
     Dosage: 1PUFF TWICE PER DAY
     Route: 055
     Dates: start: 20050501
  2. XANAX [Concomitant]
  3. ALBUTEROL SPIROS [Concomitant]
  4. ALPRAZOLAM [Concomitant]
  5. ATIVAN [Concomitant]
  6. ZANTAC [Concomitant]

REACTIONS (7)
  - CARDIAC FLUTTER [None]
  - DYSPEPSIA [None]
  - HEART RATE INCREASED [None]
  - PHARMACEUTICAL PRODUCT COMPLAINT [None]
  - RESPIRATORY TRACT IRRITATION [None]
  - SENSATION OF BLOOD FLOW [None]
  - THROAT IRRITATION [None]
